FAERS Safety Report 20341250 (Version 6)
Quarter: 2023Q1

REPORT INFORMATION
  Report Type: Report from Study
  Country: PL (occurrence: PL)
  Receive Date: 20220117
  Receipt Date: 20230214
  Transmission Date: 20230418
  Serious: Yes (Other)
  Sender: FDA-Public Use
  Company Number: PL-ROCHE-2924361

PATIENT
  Age: 69 Year
  Sex: Male
  Weight: 48 kg

DRUGS (17)
  1. CARBOPLATIN [Suspect]
     Active Substance: CARBOPLATIN
     Indication: Small cell lung cancer extensive stage
     Dosage: 435 MG
     Route: 065
     Dates: start: 20210810
  2. ETOPOSIDE [Suspect]
     Active Substance: ETOPOSIDE
     Indication: Small cell lung cancer extensive stage
     Dosage: 146 MG
     Route: 042
     Dates: start: 20210810
  3. ATEZOLIZUMAB [Suspect]
     Active Substance: ATEZOLIZUMAB
     Indication: Small cell lung cancer extensive stage
     Dosage: 1200 MG, EVERY 3 WEEKS
     Route: 041
     Dates: start: 20210810
  4. ATEZOLIZUMAB [Suspect]
     Active Substance: ATEZOLIZUMAB
     Dosage: 1200 MG
     Route: 042
     Dates: start: 20210902
  5. ATEZOLIZUMAB [Suspect]
     Active Substance: ATEZOLIZUMAB
     Dosage: UNK
     Route: 042
     Dates: start: 20211126
  6. FILGRASTIM [Concomitant]
     Active Substance: FILGRASTIM
     Dosage: UNK, 1X/DAY
     Dates: start: 20211013, end: 20211017
  7. ONDANSETRON HYDROCHLORIDE [Concomitant]
     Active Substance: ONDANSETRON HYDROCHLORIDE
     Dates: start: 20210812, end: 20211126
  8. ALPRAZOLAM [Concomitant]
     Active Substance: ALPRAZOLAM
     Dosage: UNK
     Dates: start: 20211018, end: 20220627
  9. FORASTMIN [Concomitant]
     Dosage: FREQ: 0.5 D;
     Dates: start: 20210904
  10. ACETAMINOPHEN [Concomitant]
     Active Substance: ACETAMINOPHEN
     Dates: start: 20210813, end: 20211126
  11. FILGRASTIM [Concomitant]
     Active Substance: FILGRASTIM
     Dosage: UNK, 1X/DAY
     Dates: start: 20210905, end: 20210909
  12. FILGRASTIM [Concomitant]
     Active Substance: FILGRASTIM
     Dosage: UNK
     Dates: start: 20210927, end: 20211001
  13. ALLOPURINOL [Concomitant]
     Active Substance: ALLOPURINOL
     Indication: Prophylaxis
     Dosage: FREQ: 0.5 D;
     Dates: start: 20210812, end: 20210902
  14. RAMIPRIL [Concomitant]
     Active Substance: RAMIPRIL
     Dosage: UNK
     Dates: start: 20220128
  15. AMLODIPINE BESYLATE [Concomitant]
     Active Substance: AMLODIPINE BESYLATE
     Dosage: UNK
     Dates: start: 20220128
  16. AMOXICILLIN\CLAVULANIC ACID [Concomitant]
     Active Substance: AMOXICILLIN\CLAVULANIC ACID
     Dosage: FREQ: 0.5 D;
     Dates: start: 20220808, end: 20220815
  17. ATEZOLIZUMAB [Concomitant]
     Active Substance: ATEZOLIZUMAB

REACTIONS (2)
  - Hyperthyroidism [Recovered/Resolved with Sequelae]
  - Hypothyroidism [Recovering/Resolving]

NARRATIVE: CASE EVENT DATE: 20210924
